FAERS Safety Report 5915470-7 (Version None)
Quarter: 2008Q4

REPORT INFORMATION
  Report Type: 
  Country: None (occurrence: None)
  Receive Date: 20081010
  Receipt Date: 20081006
  Transmission Date: 20090506
  Serious: Yes (Hospitalization, Disabling, Other)
  Sender: FDA-Public Use
  Company Number: US-PFIZER INC-2006093373

PATIENT
  Sex: Male

DRUGS (31)
  1. NEURONTIN [Suspect]
     Indication: PAIN IN EXTREMITY
     Route: 048
     Dates: start: 20001101
  2. NEURONTIN [Suspect]
     Indication: NEUROPATHY PERIPHERAL
  3. NEURONTIN [Suspect]
     Indication: PARTIAL SEIZURES
  4. LYRICA [Suspect]
     Indication: PROCEDURAL PAIN
     Dates: start: 20060701, end: 20060704
  5. ALL OTHER THERAPEUTIC PRODUCTS [Concomitant]
  6. LEVOTHYROXINE SODIUM [Concomitant]
  7. SPIRONOLACTONE [Concomitant]
  8. CLONIDINE [Concomitant]
  9. LOVASTATIN [Concomitant]
  10. FUROSEMIDE [Concomitant]
  11. PAXIL [Concomitant]
  12. XANAX [Concomitant]
  13. INSULIN [Concomitant]
  14. ACTONEL [Concomitant]
  15. FOLIC ACID [Concomitant]
  16. POTASSIUM CHLORIDE [Concomitant]
  17. ZYRTEC [Concomitant]
  18. FLONASE [Concomitant]
  19. PENTOXIFYLLINE [Concomitant]
  20. ALDACTAZIDE [Concomitant]
  21. AMITRIPTYLINE HCL [Concomitant]
  22. AUGMENTIN '125' [Concomitant]
  23. FLUOCINONIDE [Concomitant]
  24. PRAVACHOL [Concomitant]
  25. PEPCID [Concomitant]
  26. BACTROBAN [Concomitant]
  27. HUMALOG [Concomitant]
  28. PREDNISONE TAB [Concomitant]
  29. HUMIRA [Concomitant]
  30. COZAAR [Concomitant]
  31. TRAZODONE HCL [Concomitant]

REACTIONS (64)
  - ABDOMINAL DISTENSION [None]
  - ABSCESS LIMB [None]
  - ACTIVITIES OF DAILY LIVING IMPAIRED [None]
  - ANGIOLIPOMA [None]
  - ANXIETY [None]
  - BACK PAIN [None]
  - BLINDNESS [None]
  - BONE SARCOMA [None]
  - BUNDLE BRANCH BLOCK LEFT [None]
  - BUNDLE BRANCH BLOCK RIGHT [None]
  - CARDIAC FAILURE [None]
  - CARPAL TUNNEL SYNDROME [None]
  - CATARACT [None]
  - CELLULITIS [None]
  - CHEST PAIN [None]
  - COMPLEX REGIONAL PAIN SYNDROME [None]
  - CONJUNCTIVITIS ALLERGIC [None]
  - DEPRESSION [None]
  - DIABETIC COMA [None]
  - DIABETIC RETINOPATHY [None]
  - DIZZINESS [None]
  - DRUG HYPERSENSITIVITY [None]
  - DRUG INEFFECTIVE [None]
  - DRUG SCREEN FALSE POSITIVE [None]
  - EYE HAEMORRHAGE [None]
  - FACIAL PAIN [None]
  - FALL [None]
  - FLUID RETENTION [None]
  - GINGIVITIS [None]
  - GLUCOSE TOLERANCE DECREASED [None]
  - HUMERUS FRACTURE [None]
  - HYPERLIPIDAEMIA [None]
  - INTERVERTEBRAL DISC PROTRUSION [None]
  - LIPOMA [None]
  - LUMBAR RADICULOPATHY [None]
  - MYODESOPSIA [None]
  - NEOPLASM MALIGNANT [None]
  - NEPHROPATHY [None]
  - NEUROPATHY PERIPHERAL [None]
  - NEUROSIS [None]
  - OBESITY [None]
  - OEDEMA PERIPHERAL [None]
  - OPTIC NERVE INJURY [None]
  - OROPHARYNGEAL BLISTERING [None]
  - ORTHOPEDIC PROCEDURE [None]
  - PANIC ATTACK [None]
  - PARTIAL SEIZURES [None]
  - PERIPHERAL VASCULAR DISORDER [None]
  - PHOTOPSIA [None]
  - PNEUMONIA BACTERIAL [None]
  - PNEUMONIA VIRAL [None]
  - PULMONARY HYPERTENSION [None]
  - RETINAL DETACHMENT [None]
  - RETINAL VASCULAR DISORDER [None]
  - RHEUMATOID ARTHRITIS [None]
  - ROTATOR CUFF SYNDROME [None]
  - SINUS HEADACHE [None]
  - SLEEP APNOEA SYNDROME [None]
  - SUBCUTANEOUS NODULE [None]
  - SYNOVIAL RUPTURE [None]
  - THERMAL BURN [None]
  - TOOTH LOSS [None]
  - VISION BLURRED [None]
  - VITREOUS HAEMORRHAGE [None]
